FAERS Safety Report 19381509 (Version 1)
Quarter: 2021Q2

REPORT INFORMATION
  Report Type: Spontaneous
  Country: US (occurrence: US)
  Receive Date: 20210607
  Receipt Date: 20210607
  Transmission Date: 20210717
  Serious: Yes (Other)
  Sender: FDA-Public Use
  Company Number: US-BAYER-2021-151813

PATIENT
  Age: 65 Year
  Sex: Female

DRUGS (5)
  1. ASPIRIN (CARDIO) [Suspect]
     Active Substance: ASPIRIN
     Dosage: 81 MG, QD
  2. INSULIN GLARGINE [Concomitant]
     Active Substance: INSULIN GLARGINE
     Dosage: 10 UNITS, DAILY
  3. LEVOFLOXACIN. [Concomitant]
     Active Substance: LEVOFLOXACIN
     Dosage: 500 MG, QD
  4. FUROSEMIDE. [Concomitant]
     Active Substance: FUROSEMIDE
     Dosage: 20 MG, QD
  5. LINEZOLID. [Concomitant]
     Active Substance: LINEZOLID
     Dosage: 600 MG, BID

REACTIONS (2)
  - Anaemia [None]
  - Haematemesis [None]
